FAERS Safety Report 6815140-7 (Version None)
Quarter: 2010Q3

REPORT INFORMATION
  Report Type: 
  Country: None (occurrence: None)
  Receive Date: 20100702
  Receipt Date: 20100628
  Transmission Date: 20110219
  Serious: Yes (Death)
  Sender: FDA-Public Use
  Company Number: PHHY2010PH41798

PATIENT
  Age: 27 Year
  Sex: Female

DRUGS (2)
  1. GLEEVEC [Suspect]
     Indication: CHRONIC MYELOID LEUKAEMIA
     Dosage: 400MG/DAY
  2. GLEEVEC [Suspect]
     Dosage: 300MG/DAY

REACTIONS (4)
  - ARRHYTHMIA [None]
  - CYANOSIS [None]
  - DEATH [None]
  - PANCYTOPENIA [None]
